FAERS Safety Report 23520535 (Version 2)
Quarter: 2024Q1

REPORT INFORMATION
  Report Type: Spontaneous
  Country: CA (occurrence: CA)
  Receive Date: 20240214
  Receipt Date: 20240226
  Transmission Date: 20240410
  Serious: Yes (Hospitalization, Other)
  Sender: FDA-Public Use
  Company Number: CA-CELLTRION INC.-2024CA003535

PATIENT

DRUGS (8)
  1. INFLECTRA [Suspect]
     Active Substance: INFLIXIMAB-DYYB
     Indication: Crohn^s disease
     Dosage: 5 MG/KG, EVERY 0, 2, 6 WEEKS THEN EVERY 8 WEEKS, ROUNDED TO NEAREST VIAL
     Route: 042
     Dates: start: 20210603, end: 20210909
  2. INFLECTRA [Suspect]
     Active Substance: INFLIXIMAB-DYYB
     Dosage: 10 MG/KG, EVERY 8 WEEKS, ROUND TO NEAREST VIAL
     Route: 042
     Dates: start: 20211104, end: 20220224
  3. INFLECTRA [Suspect]
     Active Substance: INFLIXIMAB-DYYB
     Dosage: 10 MG/KG, EVERY 6 WEEKS, ROUND TO NEAREST VIAL
     Route: 042
     Dates: start: 20220331
  4. INFLECTRA [Suspect]
     Active Substance: INFLIXIMAB-DYYB
     Dosage: 10 MG/KG, EVERY 6 WEEKS
     Route: 042
     Dates: start: 20231220
  5. INFLECTRA [Suspect]
     Active Substance: INFLIXIMAB-DYYB
     Dosage: 10 MG/KG, EVERY 6 WEEKS, ROUND TO NEAREST VIAL(1000MG, 8 WEEKS AND 1 DAY)
     Route: 042
     Dates: start: 20240215
  6. BREO ELLIPTA [Concomitant]
     Active Substance: FLUTICASONE FUROATE\VILANTEROL TRIFENATATE
     Dosage: 1 DF, DOSAGE INFORMATION NOT AVAILABLE
     Route: 065
  7. NASONEX [Concomitant]
     Active Substance: MOMETASONE FUROATE
     Dosage: 1 DF, DOSAGE INFORMATION NOT AVAILABLE
     Route: 065
  8. PANTOPRAZOLE SODIUM [Concomitant]
     Active Substance: PANTOPRAZOLE SODIUM
     Dosage: 1 DF, DOSAGE INFORMATION NOT AVAILABLE
     Route: 065

REACTIONS (3)
  - Cyst [Recovering/Resolving]
  - Drainage [Not Recovered/Not Resolved]
  - Pain [Not Recovered/Not Resolved]

NARRATIVE: CASE EVENT DATE: 20240131
